FAERS Safety Report 5930378-9 (Version None)
Quarter: 2008Q4

REPORT INFORMATION
  Report Type: 
  Country: None (occurrence: None)
  Receive Date: 20081023
  Receipt Date: 20060508
  Transmission Date: 20090506
  Serious: Yes (Other)
  Sender: FDA-Public Use
  Company Number: 2006AL002050

PATIENT
  Age: 51 Year
  Sex: Female

DRUGS (1)
  1. ENULOSE [Suspect]
     Indication: CONSTIPATION
     Dosage: 10 ML;X1;PO
     Route: 048
     Dates: start: 20040603, end: 20040603

REACTIONS (4)
  - ABDOMINAL DISTENSION [None]
  - DYSPNOEA [None]
  - FACE OEDEMA [None]
  - PRESYNCOPE [None]
